FAERS Safety Report 23084228 (Version 4)
Quarter: 2024Q2

REPORT INFORMATION
  Report Type: Spontaneous
  Country: US (occurrence: US)
  Receive Date: 20231019
  Receipt Date: 20240411
  Transmission Date: 20240715
  Serious: No
  Sender: FDA-Public Use
  Company Number: US-PFIZER INC-PV202300083536

PATIENT
  Sex: Female

DRUGS (3)
  1. NICOTROL [Suspect]
     Active Substance: NICOTINE
     Indication: Smoking cessation therapy
     Dosage: UNK
     Route: 045
  2. NICOTROL [Suspect]
     Active Substance: NICOTINE
     Dosage: UNK
     Route: 045
     Dates: start: 202312
  3. NICOTROL [Suspect]
     Active Substance: NICOTINE
     Dosage: UNK
     Route: 045
     Dates: start: 20240206

REACTIONS (1)
  - Chronic obstructive pulmonary disease [Unknown]
